FAERS Safety Report 9534201 (Version 1)
Quarter: 2013Q3

REPORT INFORMATION
  Report Type: Spontaneous
  Country: US (occurrence: US)
  Receive Date: 20130918
  Receipt Date: 20130918
  Transmission Date: 20140515
  Serious: No
  Sender: FDA-Public Use
  Company Number: US-PURDUE-USA-2011-0080255

PATIENT
  Age: 60 Year
  Sex: Female
  Weight: 119.27 kg

DRUGS (2)
  1. BUTRANS [Suspect]
     Indication: INTERVERTEBRAL DISC DEGENERATION
     Dosage: 10 MCG, Q1H
     Route: 062
     Dates: start: 20110510, end: 20110810
  2. OXYCONTIN (NDA 22-272) [Concomitant]
     Indication: SPINAL OSTEOARTHRITIS
     Dosage: 40 MG, Q12H

REACTIONS (1)
  - Application site rash [Recovered/Resolved]
